FAERS Safety Report 5583738-2 (Version None)
Quarter: 2008Q1

REPORT INFORMATION
  Report Type: 
  Country: None (occurrence: None)
  Receive Date: 20080102
  Receipt Date: 20071217
  Transmission Date: 20080703
  Serious: Yes (Hospitalization)
  Sender: FDA-Public Use
  Company Number: 2007BI026994

PATIENT
  Age: 57 Year
  Sex: Male

DRUGS (7)
  1. AVONEX [Suspect]
     Indication: RELAPSING-REMITTING MULTIPLE SCLEROSIS
     Dosage: 30 UG;QW;
     Dates: start: 20051001, end: 20061201
  2. DIURETICS [Concomitant]
  3. BETA-BLOCKERS [Concomitant]
  4. RAMIPRIL [Concomitant]
  5. IRBESARTAN [Concomitant]
  6. AMLODIPINE [Concomitant]
  7. INTERFERON BETA-1B [Concomitant]

REACTIONS (3)
  - CONDITION AGGRAVATED [None]
  - RAYNAUD'S PHENOMENON [None]
  - SKIN NECROSIS [None]
